FAERS Safety Report 12912558 (Version 2)
Quarter: 2016Q4

REPORT INFORMATION
  Report Type: Spontaneous
  Country: SI (occurrence: SI)
  Receive Date: 20161104
  Receipt Date: 20161121
  Transmission Date: 20170207
  Serious: Yes (Other)
  Sender: FDA-Public Use
  Company Number: SI-JNJFOC-20161024385

PATIENT
  Age: 70 Year
  Sex: Male

DRUGS (2)
  1. IMBRUVICA [Suspect]
     Active Substance: IBRUTINIB
     Indication: CHRONIC LYMPHOCYTIC LEUKAEMIA
     Route: 048
  2. IMBRUVICA [Suspect]
     Active Substance: IBRUTINIB
     Indication: CHRONIC LYMPHOCYTIC LEUKAEMIA
     Route: 048
     Dates: start: 201502

REACTIONS (9)
  - Pulmonary hypertension [Unknown]
  - Thrombocytopenia [Recovering/Resolving]
  - Basal cell carcinoma [Unknown]
  - Thrombophlebitis superficial [Recovered/Resolved]
  - Leukocytosis [Unknown]
  - Dermatitis [Unknown]
  - Viral infection [Unknown]
  - Furuncle [Unknown]
  - Contusion [Unknown]

NARRATIVE: CASE EVENT DATE: 201604
